FAERS Safety Report 8915319 (Version 1)
Quarter: 2012Q4

REPORT INFORMATION
  Report Type: 
  Country: FR (occurrence: FR)
  Receive Date: 20121119
  Receipt Date: 20121119
  Transmission Date: 20130627
  Serious: Yes (Life-Threatening)
  Sender: FDA-Public Use
  Company Number: FR-ASTRAZENECA-2012SE86125

PATIENT
  Sex: Male

DRUGS (3)
  1. DIPRIVAN [Suspect]
     Indication: INDUCTION OF ANAESTHESIA
     Route: 040
     Dates: start: 20120718, end: 20120718
  2. TRACRIUM [Suspect]
     Indication: INDUCTION OF ANAESTHESIA
     Route: 040
     Dates: start: 20120718, end: 20120718
  3. SUFENTANIL [Suspect]
     Indication: INDUCTION OF ANAESTHESIA
     Route: 040
     Dates: start: 20120718, end: 20120718

REACTIONS (2)
  - Anaphylactic shock [Recovered/Resolved]
  - Arrhythmia [Recovered/Resolved]
